FAERS Safety Report 19821440 (Version 1)
Quarter: 2021Q3

REPORT INFORMATION
  Report Type: Spontaneous
  Country: CA (occurrence: CA)
  Receive Date: 20210913
  Receipt Date: 20210913
  Transmission Date: 20211014
  Serious: Yes (Other)
  Sender: FDA-Public Use
  Company Number: CA-ACCORD-238269

PATIENT
  Age: 58 Year
  Sex: Female

DRUGS (5)
  1. XELJANZ [Concomitant]
     Active Substance: TOFACITINIB CITRATE
     Indication: RHEUMATOID ARTHRITIS
     Dosage: 2 EVERY 1 DAYS
     Route: 048
  2. DEPO?MEDROL [Concomitant]
     Active Substance: METHYLPREDNISOLONE ACETATE
     Indication: PRODUCT USED FOR UNKNOWN INDICATION
     Dosage: SUSPENSION INTRA? ARTICULAR
     Route: 065
  3. HYDROXYCHLOROQUINE [Concomitant]
     Active Substance: HYDROXYCHLOROQUINE
     Indication: PRODUCT USED FOR UNKNOWN INDICATION
     Dosage: 1 EVERY 1 DAYS
     Route: 048
  4. BRENZYS [Suspect]
     Active Substance: ETANERCEPT
     Indication: PRODUCT USED FOR UNKNOWN INDICATION
     Dosage: PRE?FILLED AUTO?INJECTOR
     Route: 058
  5. METHOTREXATE. [Suspect]
     Active Substance: METHOTREXATE
     Indication: PRODUCT USED FOR UNKNOWN INDICATION
     Route: 065

REACTIONS (11)
  - Hypokalaemia [Unknown]
  - Cough [Unknown]
  - Drug intolerance [Unknown]
  - Fatigue [Unknown]
  - Injection site reaction [Unknown]
  - Lung infiltration [Unknown]
  - Liver function test abnormal [Unknown]
  - Product substitution issue [Unknown]
  - Asthma [Unknown]
  - Musculoskeletal stiffness [Unknown]
  - Treatment failure [Unknown]
